FAERS Safety Report 15677848 (Version 4)
Quarter: 2019Q1

REPORT INFORMATION
  Report Type: Spontaneous
  Country: NL (occurrence: NL)
  Receive Date: 20181130
  Receipt Date: 20190227
  Transmission Date: 20190417
  Serious: Yes (Hospitalization)
  Sender: FDA-Public Use
  Company Number: PHHY2018NL168268

PATIENT
  Age: 2 Year
  Sex: Female
  Weight: 14 kg

DRUGS (5)
  1. REVOLADE [Suspect]
     Active Substance: ELTROMBOPAG
     Indication: IMMUNE THROMBOCYTOPENIC PURPURA
     Dosage: 25 MG, QD
     Route: 048
     Dates: start: 20180622
  2. FYTOMENADION [Concomitant]
     Indication: PRODUCT USED FOR UNKNOWN INDICATION
     Dosage: 1 ?G/L, QD
     Route: 065
  3. COLECALCIFEROL [Concomitant]
     Active Substance: CHOLECALCIFEROL
     Indication: PRODUCT USED FOR UNKNOWN INDICATION
     Dosage: 1 ?G/L, QD
     Route: 065
  4. REVOLADE [Suspect]
     Active Substance: ELTROMBOPAG
     Dosage: 50 MG, QD
     Route: 048
     Dates: start: 20180822
  5. REVOLADE [Suspect]
     Active Substance: ELTROMBOPAG
     Dosage: 75 MG, QD
     Route: 048
     Dates: start: 20180919, end: 20181122

REACTIONS (21)
  - Petechiae [Recovered/Resolved]
  - Malaise [Recovering/Resolving]
  - Hepatic failure [Recovered/Resolved]
  - Nausea [Recovered/Resolved]
  - Platelet count decreased [Unknown]
  - Alanine aminotransferase increased [Unknown]
  - Transaminases increased [Recovered/Resolved]
  - Thrombocytosis [Recovered/Resolved]
  - Coagulation time abnormal [Recovering/Resolving]
  - Yellow skin [Recovering/Resolving]
  - Jaundice [Recovered/Resolved]
  - Plasma cell disorder [Recovered/Resolved]
  - Drug ineffective [Unknown]
  - Hyperlipidaemia [Unknown]
  - Abnormal behaviour [Recovered/Resolved]
  - Coagulopathy [Unknown]
  - Vomiting [Recovering/Resolving]
  - Skin discolouration [Recovered/Resolved]
  - Haematoma [Recovered/Resolved]
  - Fatigue [Recovered/Resolved]
  - Haemorrhage intracranial [Recovered/Resolved]

NARRATIVE: CASE EVENT DATE: 20181115
